FAERS Safety Report 23873773 (Version 1)
Quarter: 2024Q2

REPORT INFORMATION
  Report Type: Spontaneous
  Country: US (occurrence: None)
  Receive Date: 20240517
  Receipt Date: 20240517
  Transmission Date: 20240715
  Serious: Yes (Disabling)
  Sender: FDA-Public Use
  Company Number: None

PATIENT
  Sex: Female

DRUGS (1)
  1. MONTELUKAST SODIUM [Suspect]
     Active Substance: MONTELUKAST SODIUM
     Indication: Multiple allergies

REACTIONS (5)
  - Communication disorder [None]
  - Aphasia [None]
  - Confusional state [None]
  - Brain fog [None]
  - Memory impairment [None]

NARRATIVE: CASE EVENT DATE: 20240301
